FAERS Safety Report 17282076 (Version 1)
Quarter: 2020Q1

REPORT INFORMATION
  Report Type: Spontaneous
  Country: US (occurrence: US)
  Receive Date: 20200116
  Receipt Date: 20200116
  Transmission Date: 20200409
  Serious: Yes (Hospitalization)
  Sender: FDA-Public Use
  Company Number: None

PATIENT
  Age: 60 Year
  Sex: Female

DRUGS (12)
  1. METOPROLOL TAR TAB 25 MG [Concomitant]
  2. APAP/CODIENE TAB 300-30 MG [Concomitant]
  3. IBUPROFEN TAB 800 MG [Concomitant]
  4. ROSUVASTATIN TAB 5 MG [Concomitant]
  5. FOLIC ACID TAB 1 MG [Concomitant]
  6. PANTOPRAZOLE TAB 40 MG [Concomitant]
  7. METHYLPRED TAB 4 MG [Concomitant]
  8. ONDANSETRON TAB 4 MG ODT [Concomitant]
  9. GABAPENTIN CAP 100 MG [Concomitant]
     Active Substance: GABAPENTIN
  10. TRAMADOL HCL TAB 50 MG [Concomitant]
  11. XELJANZ [Suspect]
     Active Substance: TOFACITINIB CITRATE
     Indication: RHEUMATOID ARTHRITIS
     Route: 048
     Dates: start: 20180129
  12. CLOTRIM/BETA CRE DIPROP [Concomitant]

REACTIONS (1)
  - Therapy cessation [None]
